FAERS Safety Report 11614815 (Version 1)
Quarter: 2015Q4

REPORT INFORMATION
  Report Type: Spontaneous
  Country: DE (occurrence: DE)
  Receive Date: 20151009
  Receipt Date: 20151009
  Transmission Date: 20160304
  Serious: Yes (Hospitalization, Disabling, Congenital Anomaly)
  Sender: FDA-Public Use
  Company Number: DE-BEH-2010026949

PATIENT
  Age: 0 Day
  Weight: 3.7 kg

DRUGS (24)
  1. PRIVIGEN [Suspect]
     Active Substance: HUMAN IMMUNOGLOBULIN G
     Dosage: INFUSION RATE: MIN. 3 ML/MIN, MAX. 4 ML/MIN
     Dates: start: 20100305, end: 20100305
  2. PRIVIGEN [Suspect]
     Active Substance: HUMAN IMMUNOGLOBULIN G
     Dosage: INFUSION RATE: MIN. 3 ML/MIN, MAX. 4 ML/MIN
     Dates: start: 20100317, end: 20100317
  3. PRIVIGEN [Suspect]
     Active Substance: HUMAN IMMUNOGLOBULIN G
     Dosage: INFUSION RATE: MIN. 3 ML/MIN, MAX. 4 ML/MIN
     Dates: start: 20100419, end: 20100419
  4. PRIVIGEN [Suspect]
     Active Substance: HUMAN IMMUNOGLOBULIN G
     Dosage: INFUSION RATE: MIN. 3 ML/MIN, MAX. 4 ML/MIN
     Dates: start: 20100317, end: 20100317
  5. HAEMATE P [Suspect]
     Active Substance: ANTIHEMOPHILIC FACTOR HUMAN
     Dosage: 1000 IU - 7000 IU
     Dates: start: 20100128, end: 20100927
  6. FIBROGAMMIN P [Suspect]
     Active Substance: FACTOR XIII CONCENTRATE (HUMAN)
     Dates: start: 20100222, end: 20100222
  7. PRIVIGEN [Suspect]
     Active Substance: HUMAN IMMUNOGLOBULIN G
     Dosage: INFUSION RATE: MIN. 3 ML/MIN, MAX. 4 ML/MIN
     Dates: start: 20100305, end: 20100305
  8. PRIVIGEN [Suspect]
     Active Substance: HUMAN IMMUNOGLOBULIN G
     Dosage: INFUSION RATE: MIN. 3 ML/MIN, MAX. 4 ML/MIN
     Dates: start: 20100419, end: 20100419
  9. FOLIC ACID. [Concomitant]
     Active Substance: FOLIC ACID
     Route: 048
     Dates: start: 20100301, end: 20100731
  10. PRIVIGEN [Suspect]
     Active Substance: HUMAN IMMUNOGLOBULIN G
     Dosage: INFUSION RATE: MIN. 3 ML/MIN, MAX. 4 ML/MIN
     Dates: start: 20100224, end: 20100224
  11. PRIVIGEN [Suspect]
     Active Substance: HUMAN IMMUNOGLOBULIN G
     Dosage: INFUSION RATE: MIN. 3 ML/MIN, MAX. 4 ML/MIN
     Dates: start: 20100305, end: 20100305
  12. FOLIC ACID. [Concomitant]
     Active Substance: FOLIC ACID
     Route: 048
     Dates: start: 20100801, end: 20101001
  13. IRON (KRAEUTERBLUT) [Concomitant]
     Route: 048
     Dates: start: 20100722, end: 20101001
  14. PRIVIGEN [Suspect]
     Active Substance: HUMAN IMMUNOGLOBULIN G
     Dosage: INFUSION RATE: MIN. 3 ML/MIN, MAX. 5 ML/MIN
     Dates: start: 20100217, end: 20100217
  15. PRIVIGEN [Suspect]
     Active Substance: HUMAN IMMUNOGLOBULIN G
     Dosage: INFUSION RATE: MIN. 3 ML/MIN, MAX. 5 ML/MIN
     Dates: start: 20100217, end: 20100217
  16. FIBROGAMMIN P [Suspect]
     Active Substance: FACTOR XIII CONCENTRATE (HUMAN)
     Dates: start: 20100707, end: 20100707
  17. FOLIC ACID. [Concomitant]
     Active Substance: FOLIC ACID
     Route: 048
     Dates: start: 20100201, end: 20100228
  18. PRIVIGEN [Suspect]
     Active Substance: HUMAN IMMUNOGLOBULIN G
     Dosage: INFUSION RATE: MIN. 3 ML/MIN, MAX. 5 ML/MIN
     Dates: start: 20100217, end: 20100217
  19. FIBROGAMMIN P [Suspect]
     Active Substance: FACTOR XIII CONCENTRATE (HUMAN)
     Dates: start: 20100822, end: 20100822
  20. PRIVIGEN [Suspect]
     Active Substance: HUMAN IMMUNOGLOBULIN G
     Dosage: INFUSION RATE: MIN. 1.7 ML/MIN, MAX. 4.3 ML/MIN
     Dates: start: 20100201, end: 20100201
  21. PRIVIGEN [Suspect]
     Active Substance: HUMAN IMMUNOGLOBULIN G
     Dosage: INFUSION RATE: MIN. 3 ML/MIN, MAX. 4 ML/MIN
     Dates: start: 20100224, end: 20100224
  22. PRIVIGEN [Suspect]
     Active Substance: HUMAN IMMUNOGLOBULIN G
     Dosage: INFUSION RATE: MIN. 3 ML/MIN, MAX. 4 ML/MIN
     Dates: start: 20100317, end: 20100317
  23. PRIVIGEN [Suspect]
     Active Substance: HUMAN IMMUNOGLOBULIN G
     Dosage: INFUSION RATE: MIN. 3 ML/MIN, MAX. 4 ML/MIN
     Dates: start: 20100419, end: 20100419
  24. PRIVIGEN [Suspect]
     Active Substance: HUMAN IMMUNOGLOBULIN G
     Dosage: INFUSION RATE: MIN. 3 ML/MIN, MAX. 4 ML/MIN
     Dates: start: 20100224, end: 20100224

REACTIONS (3)
  - Foetal exposure during pregnancy [Not Recovered/Not Resolved]
  - Congenital genital malformation [Not Recovered/Not Resolved]
  - Syndactyly [Not Recovered/Not Resolved]

NARRATIVE: CASE EVENT DATE: 20101001
